FAERS Safety Report 6691956-5 (Version None)
Quarter: 2010Q2

REPORT INFORMATION
  Report Type: 
  Country: None (occurrence: None)
  Receive Date: 20100422
  Receipt Date: 20091223
  Transmission Date: 20101027
  Serious: No
  Sender: FDA-Public Use
  Company Number: US-ASTRAZENECA-2009SE24330

PATIENT
  Sex: Female

DRUGS (1)
  1. TOPROL-XL [Suspect]
     Route: 048

REACTIONS (4)
  - FATIGUE [None]
  - MUSCLE SPASMS [None]
  - POLLAKIURIA [None]
  - TREMOR [None]
